FAERS Safety Report 7672449-5 (Version None)
Quarter: 2011Q3

REPORT INFORMATION
  Report Type: 
  Country: None (occurrence: None)
  Receive Date: 20110809
  Receipt Date: 20110803
  Transmission Date: 20111222
  Serious: Yes (Other)
  Sender: FDA-Public Use
  Company Number: US-MERCK-1105USA02525

PATIENT
  Age: 70 Year
  Sex: Male

DRUGS (6)
  1. COSOPT [Suspect]
     Route: 047
     Dates: start: 20090914
  2. COSOPT [Suspect]
     Indication: GLAUCOMA
     Route: 047
     Dates: start: 20090730, end: 20090914
  3. XALATAN [Concomitant]
     Route: 065
  4. BRIMONIDINE TARTRATE [Concomitant]
     Route: 065
  5. COSOPT [Suspect]
     Route: 047
     Dates: start: 20050101
  6. TRAVATAN Z [Concomitant]
     Route: 065

REACTIONS (8)
  - RETINAL DETACHMENT [None]
  - POST PROCEDURAL COMPLICATION [None]
  - EYE PAIN [None]
  - INTRAOCULAR PRESSURE INCREASED [None]
  - BLINDNESS UNILATERAL [None]
  - EYE IRRITATION [None]
  - GLAUCOMA [None]
  - EYE DISORDER [None]
